FAERS Safety Report 8484516-7 (Version None)
Quarter: 2012Q3

REPORT INFORMATION
  Report Type: 
  Country: None (occurrence: None)
  Receive Date: 20120703
  Receipt Date: 20120628
  Transmission Date: 20120928
  Serious: Yes (Disabling)
  Sender: FDA-Public Use
  Company Number: US-PFIZER INC-2012156744

PATIENT
  Sex: Female

DRUGS (3)
  1. CHANTIX [Suspect]
     Dosage: UNK
     Dates: start: 20090522
  2. LIPITOR [Suspect]
     Dosage: UNK
     Dates: start: 20090522
  3. DETROL [Suspect]
     Dosage: UNK
     Dates: start: 20090522

REACTIONS (1)
  - ROAD TRAFFIC ACCIDENT [None]
